FAERS Safety Report 14289110 (Version 10)
Quarter: 2018Q2

REPORT INFORMATION
  Report Type: Report from Study
  Country: DE (occurrence: DE)
  Receive Date: 20171214
  Receipt Date: 20180516
  Transmission Date: 20180711
  Serious: Yes (Life-Threatening, Hospitalization, Other)
  Sender: FDA-Public Use
  Company Number: DE-PFIZER INC-2017529730

PATIENT
  Age: 65 Year
  Sex: Male
  Weight: 90.6 kg

DRUGS (17)
  1. SYMBICORT [Concomitant]
     Active Substance: BUDESONIDE\FORMOTEROL FUMARATE DIHYDRATE
     Indication: PRE-EXISTING DISEASE
     Dosage: DAILY DOSE: 4.5 MG MILLIGRAM(S) EVERY DAY
     Route: 055
  2. NACL 0.9% [Concomitant]
     Active Substance: SODIUM CHLORIDE
     Indication: PROPHYLAXIS
     Dosage: DAILY DOSE: 1000 ML MILLILITRE(S) EVERY DAY
     Route: 042
     Dates: start: 20170428
  3. HYLO-VISION [Concomitant]
     Active Substance: HYALURONATE SODIUM
     Dosage: 3 MG, 1X/DAY
     Route: 031
     Dates: start: 20170509
  4. VARGATEF [Suspect]
     Active Substance: NINTEDANIB
     Indication: LUNG ADENOCARCINOMA
     Dosage: 200 MG, 2X/DAY
     Route: 048
     Dates: start: 20170419, end: 20170424
  5. ASS RATIOPHARM [Concomitant]
     Active Substance: ASPIRIN
     Indication: PRE-EXISTING DISEASE
     Dosage: DAILY DOSE: 100 MG MILLIGRAM(S) EVERY DAY
     Route: 048
     Dates: start: 20170414
  6. PANTOPRAZOL [Concomitant]
     Active Substance: PANTOPRAZOLE SODIUM
     Indication: PROPHYLAXIS
     Dosage: UNK
     Route: 048
     Dates: start: 20170501
  7. NORVASC [Concomitant]
     Active Substance: AMLODIPINE BESYLATE
     Indication: PROPHYLAXIS
     Dosage: DAILY DOSE: 5 MG MILLIGRAM(S) EVERY DAY
     Route: 048
     Dates: start: 20170425
  8. LOSNESIUM [Concomitant]
     Indication: PROPHYLAXIS
     Dosage: UNK
     Route: 048
  9. DOCETAXEL. [Suspect]
     Active Substance: DOCETAXEL
     Indication: LUNG ADENOCARCINOMA
     Dosage: 150 MG/M2 BSA (BODY SURFACE AREA)
     Route: 042
     Dates: start: 20170418
  10. BRETARIS GENUAIR [Concomitant]
     Active Substance: ACLIDINIUM BROMIDE
     Indication: PRE-EXISTING DISEASE
     Dosage: 322 UG, 1X/DAY, SPRAY
     Route: 055
  11. VARGATEF [Suspect]
     Active Substance: NINTEDANIB
     Dosage: 400 MG, 1X/DAY
     Route: 048
     Dates: end: 20171006
  12. AQUAPHOR [Concomitant]
     Active Substance: PETROLATUM
     Indication: PRE-EXISTING DISEASE
     Dosage: DAILY DOSE: 10 MG MILLIGRAM(S) EVERY DAY
     Route: 048
  13. LEVOTHYROXINENATRIUM TEVA [Concomitant]
     Indication: PRE-EXISTING DISEASE
     Dosage: DAILY DOSE: 0.05 MG MILLIGRAM(S) EVERY DAY
     Route: 048
  14. ALDACTONE [Concomitant]
     Active Substance: SPIRONOLACTONE
     Indication: PROPHYLAXIS
     Dosage: 25 MG, 1X/DAY
     Route: 048
     Dates: start: 20161124
  15. PREDNISOLONE. [Concomitant]
     Active Substance: PREDNISOLONE
     Indication: PRE-EXISTING DISEASE
     Dosage: DAILY DOSE: 15 MG MILLIGRAM(S) EVERY DAY
     Route: 048
  16. VARGATEF [Suspect]
     Active Substance: NINTEDANIB
     Dosage: 400 MG, 1X/DAY
     Route: 048
     Dates: end: 20170620
  17. VARGATEF [Suspect]
     Active Substance: NINTEDANIB
     Dosage: 1X/DAY
     Route: 048
     Dates: end: 20180103

REACTIONS (18)
  - Bronchitis [Recovered/Resolved]
  - Hypokalaemia [Recovered/Resolved]
  - Decreased appetite [Recovered/Resolved]
  - C-reactive protein increased [Recovered/Resolved]
  - Weight decreased [Recovered/Resolved]
  - C-reactive protein increased [Recovered/Resolved]
  - Tumour pain [Unknown]
  - White blood cell count decreased [Recovered/Resolved]
  - Nausea [Recovered/Resolved]
  - White blood cell count decreased [Recovered/Resolved]
  - Constipation [Recovered/Resolved]
  - Palmar-plantar erythrodysaesthesia syndrome [Not Recovered/Not Resolved]
  - Stomatitis [Recovered/Resolved with Sequelae]
  - Abdominal pain upper [Recovered/Resolved]
  - Diarrhoea [Unknown]
  - Vision blurred [Not Recovered/Not Resolved]
  - Febrile neutropenia [Recovered/Resolved]
  - Hyponatraemia [Not Recovered/Not Resolved]

NARRATIVE: CASE EVENT DATE: 20170425
